FAERS Safety Report 15289177 (Version 1)
Quarter: 2018Q3

REPORT INFORMATION
  Report Type: Spontaneous
  Country: US (occurrence: US)
  Receive Date: 20180803
  Receipt Date: 20180803
  Transmission Date: 20181010
  Serious: Yes (Hospitalization, Other)
  Sender: FDA-Public Use
  Company Number: None

PATIENT
  Sex: Female
  Weight: 68.04 kg

DRUGS (1)
  1. NEXPLANON [Suspect]
     Active Substance: ETONOGESTREL
     Dates: start: 20151031, end: 20160229

REACTIONS (16)
  - Rash [None]
  - Eye swelling [None]
  - Drug hypersensitivity [None]
  - Haemorrhage [None]
  - Affect lability [None]
  - Ill-defined disorder [None]
  - Erythema [None]
  - Skin exfoliation [None]
  - Skin fissures [None]
  - Muscle spasms [None]
  - Fatigue [None]
  - Swelling face [None]
  - Dyspnoea [None]
  - Pharyngeal oedema [None]
  - Abdominal pain [None]
  - Allergy to metals [None]
